FAERS Safety Report 5465552-1 (Version None)
Quarter: 2007Q3

REPORT INFORMATION
  Report Type: 
  Country: None (occurrence: None)
  Receive Date: 20070924
  Receipt Date: 19930525
  Transmission Date: 20080115
  Serious: Yes (Other)
  Sender: FDA-Public Use
  Company Number: FR-PFIZER INC-2006122538

PATIENT
  Sex: Female

DRUGS (2)
  1. IRINOTECAN HCL [Suspect]
     Indication: CERVIX CARCINOMA
     Dosage: DAILY DOSE:539MG
     Route: 042
     Dates: start: 19930414, end: 19930414
  2. IRINOTECAN HCL [Suspect]
     Dosage: DAILY DOSE:539MG
     Route: 042
     Dates: start: 19930504, end: 19930504

REACTIONS (1)
  - HEMIPARESIS [None]
